FAERS Safety Report 8208523-4 (Version None)
Quarter: 2012Q1

REPORT INFORMATION
  Report Type: 
  Country: None (occurrence: None)
  Receive Date: 20120314
  Receipt Date: 20120229
  Transmission Date: 20120608
  Serious: Yes (Hospitalization)
  Sender: FDA-Public Use
  Company Number: JP-ROCHE-1044988

PATIENT
  Age: 7 Year
  Sex: Female

DRUGS (7)
  1. CLARITHROMYCIN [Suspect]
     Indication: PYREXIA
     Dosage: DOSAGE IS UNCERTAIN.
     Route: 048
  2. CLINDAMYCIN [Suspect]
     Indication: PYREXIA
     Dosage: DOSAGE IS UNCERTAIN.
     Route: 041
  3. AZITHROMYCIN [Suspect]
     Indication: PYREXIA
     Dosage: DOSAGE IS UNCERTAIN.
     Route: 048
  4. MINOCYCLINE HYDROCHLORIDE [Suspect]
     Indication: PYREXIA
     Dosage: DOSAGE IS UNCERTAIN.
     Route: 042
  5. ROCEPHIN [Suspect]
     Indication: PYREXIA
     Dosage: DOSAGE IS UNCERTAIN.
     Route: 041
  6. CEFDITOREN PIVOXIL [Suspect]
     Indication: PYREXIA
     Dosage: DOSAGE IS UNCERTAIN.
     Route: 048
  7. AMPICILLIN AND SULBACTAM [Suspect]
     Indication: PYREXIA
     Dosage: DOSAGE IS UNCERTAIN.
     Route: 042

REACTIONS (1)
  - PSEUDOMEMBRANOUS COLITIS [None]
